FAERS Safety Report 5398113-3 (Version None)
Quarter: 2007Q3

REPORT INFORMATION
  Report Type: 
  Country: None (occurrence: None)
  Receive Date: 20070726
  Receipt Date: 20070716
  Transmission Date: 20080115
  Serious: Yes (Hospitalization)
  Sender: FDA-Public Use
  Company Number: US-BAUSCH-2007BL002124

PATIENT
  Age: 62 Year
  Sex: Male

DRUGS (2)
  1. ATROPINE SULFATE [Suspect]
     Indication: PREOPERATIVE CARE
     Route: 047
     Dates: start: 20070516, end: 20070520
  2. ^MANY UNSPECIFIED MEDICATIONS^ [Concomitant]

REACTIONS (3)
  - FALL [None]
  - PSYCHOTIC DISORDER [None]
  - SKIN LACERATION [None]
